FAERS Safety Report 4627691-4 (Version None)
Quarter: 2005Q2

REPORT INFORMATION
  Report Type: 
  Country: None (occurrence: None)
  Receive Date: 20050401
  Receipt Date: 20050318
  Transmission Date: 20051028
  Serious: Yes (Hospitalization)
  Sender: FDA-Public Use
  Company Number: 2005BI006151

PATIENT
  Age: 53 Year
  Sex: Female

DRUGS (6)
  1. AVONEX [Suspect]
     Indication: MULTIPLE SCLEROSIS
     Dosage: IM
     Route: 030
  2. NATALIZUMAB [Suspect]
     Indication: MULTIPLE SCLEROSIS
     Dosage: 300 MG;QW; IV
     Route: 042
     Dates: start: 20050215, end: 20050215
  3. NEURONTIN [Concomitant]
  4. PROVIGIL [Concomitant]
  5. SINEMET [Concomitant]
  6. LEXAPRO [Concomitant]

REACTIONS (1)
  - COLITIS ISCHAEMIC [None]
